FAERS Safety Report 11320183 (Version 2)
Quarter: 2015Q3

REPORT INFORMATION
  Report Type: Spontaneous
  Country: CA (occurrence: CA)
  Receive Date: 20150729
  Receipt Date: 20150803
  Transmission Date: 20151125
  Serious: Yes (Death, Life-Threatening, Hospitalization, Other)
  Sender: FDA-Public Use
  Company Number: CA-CELGENE-CAN-2015074909

PATIENT
  Age: 71 Year
  Sex: Female

DRUGS (6)
  1. BORTEZOMIB [Suspect]
     Active Substance: BORTEZOMIB
     Indication: PLASMA CELL MYELOMA
     Route: 065
  2. REVLIMID [Suspect]
     Active Substance: LENALIDOMIDE
     Indication: PLASMA CELL MYELOMA
     Route: 048
  3. DEXAMETHASONE. [Suspect]
     Active Substance: DEXAMETHASONE
     Indication: PLASMA CELL MYELOMA
     Route: 065
  4. MELPHALAN [Suspect]
     Active Substance: MELPHALAN
     Indication: PLASMA CELL MYELOMA
     Route: 065
  5. PREDNISONE. [Suspect]
     Active Substance: PREDNISONE
     Indication: PLASMA CELL MYELOMA
     Route: 065
  6. LABETALOL [Concomitant]
     Active Substance: LABETALOL\LABETALOL HYDROCHLORIDE
     Indication: BLOOD PRESSURE INCREASED
     Route: 041

REACTIONS (13)
  - Altered state of consciousness [Fatal]
  - Fatigue [Fatal]
  - Oncologic complication [Fatal]
  - Diarrhoea [Fatal]
  - Drug effect incomplete [Fatal]
  - Posterior reversible encephalopathy syndrome [Fatal]
  - Bone marrow failure [Fatal]
  - Plasma cell myeloma [Fatal]
  - Brain oedema [Fatal]
  - Generalised tonic-clonic seizure [Fatal]
  - Headache [Fatal]
  - Neuropathy peripheral [Fatal]
  - Thrombocytopenia [Fatal]
